FAERS Safety Report 14192886 (Version 2)
Quarter: 2017Q4

REPORT INFORMATION
  Report Type: Report from Study
  Country: ES (occurrence: ES)
  Receive Date: 20171116
  Receipt Date: 20171207
  Transmission Date: 20180321
  Serious: Yes (Hospitalization)
  Sender: FDA-Public Use
  Company Number: ES-ROCHE-2023740

PATIENT
  Age: 60 Year
  Sex: Male
  Weight: 61 kg

DRUGS (8)
  1. NOLOTIL (METAMIZOLE MAGNESIUM) [Concomitant]
     Active Substance: METAMIZOLE MAGNESIUM
     Route: 065
  2. APIXABAN [Concomitant]
     Active Substance: APIXABAN
     Route: 065
  3. FLUDROCORTISONA [Concomitant]
     Route: 065
  4. PANTOPRAZOLE [Concomitant]
     Active Substance: PANTOPRAZOLE
     Route: 065
  5. LEVOFLOXACINE [Concomitant]
     Active Substance: LEVOFLOXACIN
     Route: 065
     Dates: start: 20171021, end: 20171030
  6. HIDROCORTISONA [Concomitant]
     Active Substance: HYDROCORTISONE
     Route: 065
  7. RO 6895882 (CEA-IL2V) [Suspect]
     Active Substance: INVESTIGATIONAL PRODUCT
     Indication: METASTATIC NEOPLASM
     Dosage: LAST DOSE PRIIOR TO EVENTS ONSET 06/NOV/2017, 15 MG?DOSE ESCALATAION AS PER PROTOCOL
     Route: 042
     Dates: start: 20171106
  8. ATEZOLIZUMAB. [Suspect]
     Active Substance: ATEZOLIZUMAB
     Indication: METASTATIC NEOPLASM
     Dosage: LAST DOSE PRIOR TO EVENTS ONSET 06/NOV/2017?FIXED DOSE AS PER PROTOCOL.
     Route: 042
     Dates: start: 20171106

REACTIONS (2)
  - Hypotension [Recovered/Resolved]
  - Asthenia [Recovered/Resolved]

NARRATIVE: CASE EVENT DATE: 20171107
